FAERS Safety Report 14950905 (Version 2)
Quarter: 2018Q3

REPORT INFORMATION
  Report Type: Report from Study
  Country: None (occurrence: US)
  Receive Date: 20180530
  Receipt Date: 20180709
  Transmission Date: 20181010
  Serious: Yes (Death, Hospitalization)
  Sender: FDA-Public Use
  Company Number: US-BAUSCH-BL-2018-015393

PATIENT
  Sex: Male
  Weight: 78.54 kg

DRUGS (2)
  1. XIFAXAN [Suspect]
     Active Substance: RIFAXIMIN
     Indication: HEPATIC ENCEPHALOPATHY
     Route: 048
     Dates: start: 201804
  2. LACTULOSE. [Concomitant]
     Active Substance: LACTULOSE
     Indication: PRODUCT USED FOR UNKNOWN INDICATION
     Route: 065

REACTIONS (5)
  - Hepatic haemorrhage [Fatal]
  - Hepatic cirrhosis [Fatal]
  - Hepatic cancer [Fatal]
  - Malaise [Fatal]
  - Disease complication [Fatal]

NARRATIVE: CASE EVENT DATE: 2018
